FAERS Safety Report 8960850 (Version 2)
Quarter: 2013Q1

REPORT INFORMATION
  Report Type: Spontaneous
  Country: US (occurrence: US)
  Receive Date: 20121212
  Receipt Date: 20130108
  Transmission Date: 20140127
  Serious: No
  Sender: FDA-Public Use
  Company Number: US-B.I. PHARMACEUTICALS,INC./RIDGEFIELD-2012-BI-02298BP

PATIENT
  Sex: Male
  Weight: 98 kg

DRUGS (11)
  1. PRADAXA [Suspect]
     Indication: ATRIAL FIBRILLATION
     Dosage: 300 MG
     Route: 048
     Dates: start: 2011
  2. LOSARTAN [Concomitant]
     Dosage: 100 MG
     Route: 048
  3. PRILOSEC [Concomitant]
     Indication: DYSPEPSIA
     Route: 048
  4. VITAMIN C [Concomitant]
     Route: 048
  5. HYDROCHLOROTHIAZIDE [Concomitant]
     Dosage: 25 MG
     Route: 048
  6. FINASTERIDE [Concomitant]
     Indication: PROSTATOMEGALY
     Dosage: 5 MG
     Route: 048
  7. VESICARE [Concomitant]
     Dosage: 5 MG
     Route: 048
  8. CARBIDOPA/LEVODOPA [Concomitant]
     Route: 048
  9. CALTRATE WITH VITAMIN D [Concomitant]
     Route: 048
  10. TERAZOSIN [Concomitant]
     Dosage: 2 MG
     Route: 048
  11. VITAMIN D3 [Concomitant]
     Route: 048

REACTIONS (7)
  - Fall [Not Recovered/Not Resolved]
  - Posture abnormal [Not Recovered/Not Resolved]
  - Gait disturbance [Not Recovered/Not Resolved]
  - Feeling abnormal [Recovered/Resolved]
  - Somnolence [Not Recovered/Not Resolved]
  - Unevaluable event [Not Recovered/Not Resolved]
  - Asthenia [Not Recovered/Not Resolved]
